FAERS Safety Report 24682140 (Version 2)
Quarter: 2025Q3

REPORT INFORMATION
  Report Type: Spontaneous
  Country: US (occurrence: US)
  Receive Date: 20241130
  Receipt Date: 20250803
  Transmission Date: 20251021
  Serious: Yes (Other)
  Sender: ALEXION PHARMACEUTICALS
  Company Number: US-AstraZeneca-CH-00756579A

PATIENT

DRUGS (1)
  1. CRESTOR [Suspect]
     Active Substance: ROSUVASTATIN CALCIUM

REACTIONS (7)
  - Muscular weakness [Unknown]
  - Muscle spasms [Unknown]
  - Asthenia [Unknown]
  - Palpitations [Unknown]
  - Product dose omission issue [Unknown]
  - Surgery [Unknown]
  - Tenderness [Unknown]

NARRATIVE: CASE EVENT DATE: 20241101
